FAERS Safety Report 6379336-3 (Version None)
Quarter: 2009Q3

REPORT INFORMATION
  Report Type: 
  Country: None (occurrence: None)
  Receive Date: 20090928
  Receipt Date: 20090914
  Transmission Date: 20100115
  Serious: Yes (Other)
  Sender: FDA-Public Use
  Company Number: US-GENENTECH-290825

PATIENT
  Age: 56 Year
  Sex: Male

DRUGS (1)
  1. BEVACIZUMAB [Suspect]
     Indication: DRUG USE FOR UNKNOWN INDICATION
     Route: 065

REACTIONS (7)
  - BRAIN ABSCESS [None]
  - DRUG TOXICITY [None]
  - GRAFT INFECTION [None]
  - HAEMATOMA [None]
  - IMPAIRED HEALING [None]
  - INTRACRANIAL HYPOTENSION [None]
  - OSTEOMYELITIS [None]
